FAERS Safety Report 13901203 (Version 1)
Quarter: 2017Q3

REPORT INFORMATION
  Report Type: Spontaneous
  Country: US (occurrence: US)
  Receive Date: 20170824
  Receipt Date: 20170824
  Transmission Date: 20171127
  Serious: No
  Sender: FDA-Public Use
  Company Number: US-ASTRAZENECA-2017SE85795

PATIENT
  Age: 14074 Day
  Sex: Female
  Weight: 104.3 kg

DRUGS (6)
  1. NOVOLOG [Concomitant]
     Active Substance: INSULIN ASPART
     Indication: BLOOD GLUCOSE INCREASED
     Dosage: THREE TIMES A DAY
     Route: 058
  2. NOVOLOG [Concomitant]
     Active Substance: INSULIN ASPART
     Indication: GLYCOSYLATED HAEMOGLOBIN INCREASED
     Dosage: THREE TIMES A DAY
     Route: 058
  3. BYDUREON [Suspect]
     Active Substance: EXENATIDE
     Indication: BLOOD GLUCOSE INCREASED
     Route: 058
     Dates: start: 20170731
  4. BYDUREON [Suspect]
     Active Substance: EXENATIDE
     Indication: GLYCOSYLATED HAEMOGLOBIN INCREASED
     Route: 058
     Dates: start: 20170731
  5. LEVEMIR [Concomitant]
     Active Substance: INSULIN DETEMIR
     Indication: GLYCOSYLATED HAEMOGLOBIN INCREASED
     Dosage: AT NIGHT
     Route: 058
  6. LEVEMIR [Concomitant]
     Active Substance: INSULIN DETEMIR
     Indication: BLOOD GLUCOSE INCREASED
     Dosage: AT NIGHT
     Route: 058

REACTIONS (6)
  - Hot flush [Recovered/Resolved]
  - Injection site extravasation [Recovered/Resolved]
  - Injection site haemorrhage [Not Recovered/Not Resolved]
  - Injection site bruising [Not Recovered/Not Resolved]
  - Retching [Recovered/Resolved]
  - Nausea [Not Recovered/Not Resolved]

NARRATIVE: CASE EVENT DATE: 20170731
